FAERS Safety Report 16312730 (Version 1)
Quarter: 2019Q2

REPORT INFORMATION
  Report Type: Spontaneous
  Country: US (occurrence: US)
  Receive Date: 20190515
  Receipt Date: 20190515
  Transmission Date: 20190711
  Serious: Yes (Death, Other)
  Sender: FDA-Public Use
  Company Number: US-ACADIA PHARMACEUTICALS INC.-ACA-2019-012742

PATIENT
  Age: 76 Year
  Sex: Female

DRUGS (1)
  1. PIMAVANSERIN [Suspect]
     Active Substance: PIMAVANSERIN
     Indication: PARKINSON^S DISEASE PSYCHOSIS
     Dosage: 34 MG, QD
     Route: 065
     Dates: start: 20170208

REACTIONS (2)
  - Choking [Fatal]
  - Anoxia [Fatal]
